FAERS Safety Report 9252362 (Version 1)
Quarter: 2013Q1

REPORT INFORMATION
  Report Type: Spontaneous
  Country: US (occurrence: None)
  Receive Date: 20130305
  Receipt Date: 20130305
  Transmission Date: 20140127
  Serious: Yes (Other)
  Sender: FDA-Public Use
  Company Number: 163-21880-12083008

PATIENT
  Age: 65 Year
  Sex: Female
  Weight: 96.16 kg

DRUGS (17)
  1. REVLIMID (LENALIDOMIDE) (25 MILLIGRAM, CAPSULES) [Suspect]
     Indication: PLASMA CELL MYELOMA
     Dosage: 25 MG, 1 IN 1 D, PO
     Route: 048
     Dates: start: 20111115
  2. WARFARIN (WARFARIN) [Suspect]
  3. LASIX (FUROSEMIDE) [Suspect]
  4. DECADRON (DEXAMETHASONE) [Suspect]
  5. LOMOTIL [Suspect]
  6. AMLODIPINE (AMLODIPINE) [Suspect]
  7. COLACE (DOCUSATE SODIUM) [Suspect]
  8. LOPRESSOR (METOPROLOL TARTRATE) [Suspect]
  9. BACTRIM [Suspect]
  10. CALCIUM (CALCIUM) [Suspect]
  11. CHOLECALCIFEROL [Suspect]
  12. VITAMIN C [Suspect]
  13. PRILOSEC [Suspect]
  14. PERIDEX [Suspect]
  15. ZOCOR (SIMVASTATIN) [Suspect]
  16. ASPIRIN (ACETYLSALICYCLIC ACID TABLET) [Suspect]
  17. ARANESP (DARBEPOETIN ALFA) [Suspect]

REACTIONS (7)
  - Neutropenia [None]
  - Thrombocytopenia [None]
  - White blood cell count decreased [None]
  - Muscle spasms [None]
  - Diarrhoea [None]
  - Fatigue [None]
  - Blood count abnormal [None]
